FAERS Safety Report 21549818 (Version 1)
Quarter: 2022Q4

REPORT INFORMATION
  Report Type: Spontaneous
  Country: US (occurrence: US)
  Receive Date: 20221103
  Receipt Date: 20221103
  Transmission Date: 20230113
  Serious: No
  Sender: FDA-Public Use
  Company Number: US-Fresenius Medical Care Renal Therapies Group-FMC-2210-001731

PATIENT
  Sex: Male

DRUGS (1)
  1. DELFLEX [Suspect]
     Active Substance: CALCIUM CHLORIDE\DEXTROSE\MAGNESIUM CHLORIDE\SODIUM CHLORIDE\SODIUM LACTATE
     Indication: End stage renal disease
     Dosage: FILLS 4; FILL VOLUME 2500 ML; LAST FILL VOLUME 0ML; TOTAL VOLUME 10000 ML; TOTAL SLEEP TIME 9HR 0 MI
     Route: 033

REACTIONS (2)
  - Fatigue [Unknown]
  - Sleep disorder [Unknown]
